FAERS Safety Report 10267187 (Version 1)
Quarter: 2014Q2

REPORT INFORMATION
  Report Type: Spontaneous
  Country: US (occurrence: None)
  Receive Date: 20140626
  Receipt Date: 20140626
  Transmission Date: 20141212
  Serious: Yes (Life-Threatening, Hospitalization)
  Sender: FDA-Public Use
  Company Number: None

PATIENT
  Age: 73 Year
  Sex: Male
  Weight: 76 kg

DRUGS (16)
  1. XGEVA (DENOSUMAB) [Suspect]
     Indication: BONE DISORDER
     Route: 058
     Dates: start: 20140506
  2. XGEVA (DENOSUMAB) [Suspect]
     Indication: METASTASES TO BONE
     Route: 058
     Dates: start: 20140506
  3. LEVOTHYROXINE [Concomitant]
  4. METFORMIN [Concomitant]
  5. AMLODIPINE [Concomitant]
  6. ESOMEPRAZOLE [Concomitant]
  7. METOPROLOL SUCCINATE [Concomitant]
  8. MG OXIDE [Concomitant]
  9. NORCO [Concomitant]
  10. LACTULOSE [Concomitant]
  11. NEUTRA-PHOS [Concomitant]
  12. FENTANYL [Concomitant]
  13. CALCIUM CITRATE [Concomitant]
  14. ASPIRIN [Concomitant]
  15. IBUPROFEN [Suspect]
  16. ERGOCALCIFEROL [Concomitant]

REACTIONS (4)
  - Hypomagnesaemia [None]
  - Hypocalcaemia [None]
  - Hypophosphataemia [None]
  - Hyponatraemia [None]
